FAERS Safety Report 8811322 (Version 1)
Quarter: 2012Q4

REPORT INFORMATION
  Report Type: 
  Country: US (occurrence: US)
  Receive Date: 20120927
  Receipt Date: 20120927
  Transmission Date: 20130627
  Serious: Yes (Other)
  Sender: FDA-Public Use
  Company Number: US-ELI_LILLY_AND_COMPANY-US201209004244

PATIENT
  Sex: Female

DRUGS (8)
  1. CYMBALTA [Suspect]
     Indication: ANXIETY
     Dosage: 90 mg, qd
  2. SYNTHROID [Concomitant]
     Indication: HYPOTHYROIDISM
  3. PLAQUENIL [Concomitant]
  4. CARDIZEM                           /00489701/ [Concomitant]
  5. TOPROL [Concomitant]
     Indication: HYPERTENSION
  6. VICODIN [Concomitant]
  7. KLONOPIN [Concomitant]
     Indication: ANXIETY
  8. CORTISONE [Concomitant]

REACTIONS (5)
  - Spinal fusion surgery [Recovered/Resolved]
  - Panic reaction [Unknown]
  - Anxiety [Unknown]
  - Tremor [Unknown]
  - Gait disturbance [Unknown]
